FAERS Safety Report 7244633-6 (Version None)
Quarter: 2011Q1

REPORT INFORMATION
  Report Type: 
  Country: None (occurrence: None)
  Receive Date: 20110125
  Receipt Date: 20110118
  Transmission Date: 20110831
  Serious: Yes (Hospitalization, Disabling, Other)
  Sender: FDA-Public Use
  Company Number: US-MERCK-0805USA00731

PATIENT
  Age: 71 Year
  Sex: Male
  Weight: 93 kg

DRUGS (3)
  1. FOSAMAX [Suspect]
     Indication: OSTEOPOROSIS
     Route: 048
     Dates: start: 19970321, end: 20050613
  2. FOSAMAX [Suspect]
     Route: 048
     Dates: start: 20040806
  3. BONIVA [Suspect]
     Indication: OSTEOPOROSIS
     Route: 065
     Dates: start: 20050613, end: 20070402

REACTIONS (41)
  - ADVERSE EVENT [None]
  - CEREBROVASCULAR ACCIDENT [None]
  - MACULAR OEDEMA [None]
  - HYPERLIPIDAEMIA [None]
  - OSTEOARTHRITIS [None]
  - TOOTH FRACTURE [None]
  - ATRIAL FIBRILLATION [None]
  - ANAEMIA OF CHRONIC DISEASE [None]
  - MOUTH ULCERATION [None]
  - ANOSMIA [None]
  - CATARACT [None]
  - VERTIGO [None]
  - CORONARY ARTERY DISEASE [None]
  - VASOMOTOR RHINITIS [None]
  - THALASSAEMIA BETA [None]
  - SINUSITIS [None]
  - SQUAMOUS CELL CARCINOMA [None]
  - DENTAL CARIES [None]
  - NEUROPATHY PERIPHERAL [None]
  - BACK PAIN [None]
  - CHAPPED LIPS [None]
  - ATRIOVENTRICULAR BLOCK [None]
  - BASAL CELL CARCINOMA [None]
  - HYPERSENSITIVITY [None]
  - TRANSIENT ISCHAEMIC ATTACK [None]
  - COLONIC POLYP [None]
  - CARDIAC DISORDER [None]
  - CARDIAC VALVE DISEASE [None]
  - FRACTURE [None]
  - OSTEOPENIA [None]
  - VITAMIN D DEFICIENCY [None]
  - OSTEONECROSIS OF JAW [None]
  - PROSTATE CANCER [None]
  - ABSCESS [None]
  - PSORIASIS [None]
  - DENTAL PROSTHESIS USER [None]
  - BLINDNESS [None]
  - SLEEP APNOEA SYNDROME [None]
  - RHINITIS SEASONAL [None]
  - BENIGN PROSTATIC HYPERPLASIA [None]
  - ATRIAL FLUTTER [None]
